FAERS Safety Report 8954063 (Version 1)
Quarter: 2012Q4

REPORT INFORMATION
  Report Type: 
  Country: US (occurrence: US)
  Receive Date: 20121207
  Receipt Date: 20121207
  Transmission Date: 20130627
  Serious: No
  Sender: FDA-Public Use
  Company Number: US-BAYER-2012-128558

PATIENT
  Sex: Female

DRUGS (2)
  1. ALEVE GELCAP [Suspect]
     Dosage: 1 DF, PRN
     Route: 048
  2. NAPROXEN [Concomitant]
     Dosage: UNK

REACTIONS (2)
  - Rash [Recovered/Resolved]
  - Erythema [Recovered/Resolved]
